FAERS Safety Report 5126868-1 (Version None)
Quarter: 2006Q3

REPORT INFORMATION
  Report Type: 
  Country: None (occurrence: None)
  Receive Date: 20060825
  Receipt Date: 20060606
  Transmission Date: 20061208
  Serious: No
  Sender: FDA-Public Use
  Company Number: 2006US003165

PATIENT
  Age: 48 Year
  Sex: Female
  Weight: 63 kg

DRUGS (11)
  1. ALOXI [Suspect]
     Indication: PROPHYLAXIS OF NAUSEA AND VOMITING
     Dosage: 0.25 MG, SINGLE, IV BOLUS
     Route: 040
     Dates: start: 20060411, end: 20060411
  2. ALOXI [Suspect]
     Dosage: 0.25 MG,Q2WK, IV DRIP
     Route: 041
  3. DECADRON /00016001/(DEXAMETHASONE) [Concomitant]
  4. OXALIPLATIN [Concomitant]
  5. CALCIUM GLUCONATE [Concomitant]
  6. MAGNESIUM SULFATE [Concomitant]
  7. LIPITOR /01326101/ (ATORVASTATIN) [Concomitant]
  8. NEXIUM [Concomitant]
  9. FOSAMAX [Concomitant]
  10. LEXAPRO [Concomitant]
  11. ATIVAN [Concomitant]

REACTIONS (2)
  - DRUG EFFECT DECREASED [None]
  - NAUSEA [None]
